FAERS Safety Report 5391058-4 (Version None)
Quarter: 2007Q3

REPORT INFORMATION
  Report Type: 
  Country: None (occurrence: None)
  Receive Date: 20070717
  Receipt Date: 20070711
  Transmission Date: 20080115
  Serious: Yes (Death)
  Sender: FDA-Public Use
  Company Number: S07-USA-02899-01

PATIENT
  Age: 55 Year
  Sex: Male

DRUGS (5)
  1. LEXAPRO [Suspect]
     Indication: ANXIETY
     Dosage: 10 MG QD PO
     Route: 048
     Dates: start: 20070524, end: 20070529
  2. LEXAPRO [Suspect]
     Indication: DEPRESSION
     Dosage: 10 MG QD PO
     Route: 048
     Dates: start: 20070524, end: 20070529
  3. XANAX [Concomitant]
  4. LESCOL XL [Concomitant]
  5. ALTACE [Concomitant]

REACTIONS (3)
  - COMPLETED SUICIDE [None]
  - GUN SHOT WOUND [None]
  - HEAD INJURY [None]
